FAERS Safety Report 7751341-1 (Version None)
Quarter: 2011Q3

REPORT INFORMATION
  Report Type: 
  Country: None (occurrence: None)
  Receive Date: 20110914
  Receipt Date: 20110307
  Transmission Date: 20111222
  Serious: Yes (Other)
  Sender: FDA-Public Use
  Company Number: PHHY2011TW18783

PATIENT
  Sex: Female

DRUGS (1)
  1. GLEEVEC [Suspect]
     Indication: GASTROINTESTINAL STROMAL TUMOUR
     Dosage: 400 MG, DAILY
     Route: 048

REACTIONS (15)
  - EYE HAEMORRHAGE [None]
  - SKIN PAPILLOMA [None]
  - ANAEMIA [None]
  - HYPERMETROPIA [None]
  - ORAL MUCOSA EROSION [None]
  - DYSHIDROSIS [None]
  - OCULAR HYPERAEMIA [None]
  - DERMATITIS [None]
  - HYPERTENSION [None]
  - DIZZINESS [None]
  - GLAUCOMA [None]
  - PURULENT DISCHARGE [None]
  - DRY SKIN [None]
  - CATARACT [None]
  - OROPHARYNGEAL BLISTERING [None]
